FAERS Safety Report 7289003-X (Version None)
Quarter: 2011Q1

REPORT INFORMATION
  Report Type: 
  Country: None (occurrence: None)
  Receive Date: 20110211
  Receipt Date: 20110207
  Transmission Date: 20110831
  Serious: Yes (Death)
  Sender: FDA-Public Use
  Company Number: PHHY2011GB09338

PATIENT
  Age: 88 Year
  Sex: Female

DRUGS (14)
  1. BISOPROLOL [Concomitant]
     Dosage: 1.25 MG, QD
  2. PARACETAMOL [Concomitant]
     Dosage: 1 G, AS NECESSARY
  3. ISOSORBIDE MONONITRATE [Concomitant]
     Dosage: 50 MG, QD
  4. SIMVASTATIN [Concomitant]
     Dosage: 40 MG, QD, AT NIGHT
  5. METRONIDAZOLE [Suspect]
     Dosage: 500 MG, TID
     Route: 042
  6. HYPROMELLOSE [Concomitant]
     Dosage: 1 DF, QID
  7. NICORANDIL [Concomitant]
     Dosage: 10 MG, BID
  8. AMOXICILLIN [Suspect]
     Indication: CHOLECYSTITIS
     Dosage: 1 G, UNK
     Route: 042
     Dates: start: 20090909
  9. TAZOCIN [Suspect]
     Dosage: 4.5 MG, TID
     Dates: start: 20090910, end: 20090914
  10. ENOXAPARIN SODIUM [Concomitant]
     Dosage: 40 MG, UNK
     Route: 058
  11. METRONIDAZOLE [Suspect]
     Indication: CHOLECYSTITIS
     Dosage: 500 MG, UNK
     Route: 042
     Dates: start: 20090909
  12. CLOPIDOGREL [Concomitant]
     Dosage: 75 MG, QD
  13. LEVOTHYROXINE SODIUM [Concomitant]
     Dosage: 150 UG, QD
  14. TAZOCIN [Suspect]
     Indication: CHOLECYSTITIS
     Dosage: 4.5 G, UNK
     Route: 017
     Dates: start: 20090909, end: 20090909

REACTIONS (14)
  - CYANOSIS [None]
  - GENERAL PHYSICAL HEALTH DETERIORATION [None]
  - RENAL FAILURE CHRONIC [None]
  - BLOOD PRESSURE DECREASED [None]
  - HYPOPHAGIA [None]
  - MALAISE [None]
  - WEIGHT DECREASED [None]
  - ANAEMIA [None]
  - PERIPHERAL CIRCULATORY FAILURE [None]
  - CLOSTRIDIAL INFECTION [None]
  - ABDOMINAL PAIN LOWER [None]
  - ASTHENIA [None]
  - DIARRHOEA [None]
  - HAEMORRHAGE [None]
